FAERS Safety Report 18429673 (Version 1)
Quarter: 2020Q4

REPORT INFORMATION
  Report Type: Spontaneous
  Country: US (occurrence: US)
  Receive Date: 20201026
  Receipt Date: 20201026
  Transmission Date: 20210114
  Serious: No
  Sender: FDA-Public Use
  Company Number: US-ANTARES PHARMA, INC.-2020-SPO-TX-0200

PATIENT
  Sex: Male

DRUGS (1)
  1. XYOSTED [Suspect]
     Active Substance: TESTOSTERONE ENANTHATE
     Indication: BLOOD TESTOSTERONE DECREASED
     Dosage: 100 MG/0.5ML, UNKNOWN
     Route: 058
     Dates: start: 20200711

REACTIONS (6)
  - Swelling [Unknown]
  - Pyrexia [Unknown]
  - Arthralgia [Unknown]
  - Injection site mass [Unknown]
  - Skin lesion [Unknown]
  - Erythema [Unknown]

NARRATIVE: CASE EVENT DATE: 20200714
